FAERS Safety Report 25093396 (Version 3)
Quarter: 2025Q2

REPORT INFORMATION
  Report Type: Report from Study
  Country: US (occurrence: US)
  Receive Date: 20250319
  Receipt Date: 20250528
  Transmission Date: 20250717
  Serious: Yes (Hospitalization, Disabling, Other)
  Sender: INSMED
  Company Number: US-INSMED, INC.-2025-00906-US

PATIENT
  Sex: Male

DRUGS (2)
  1. ARIKAYCE [Suspect]
     Active Substance: AMIKACIN
     Indication: Product used for unknown indication
     Dosage: 590 MILLIGRAM, QD
     Route: 055
  2. ARIKAYCE [Suspect]
     Active Substance: AMIKACIN
     Dosage: 590 MILLIGRAM, QD
     Route: 055

REACTIONS (6)
  - Hospitalisation [Unknown]
  - Cardiac disorder [Unknown]
  - Musculoskeletal chest pain [Unknown]
  - Cough [Unknown]
  - Productive cough [Unknown]
  - Therapy interrupted [Unknown]
